FAERS Safety Report 8356302-X (Version None)
Quarter: 2012Q2

REPORT INFORMATION
  Report Type: 
  Country: None (occurrence: None)
  Receive Date: 20120514
  Receipt Date: 20120504
  Transmission Date: 20120825
  Serious: Yes (Hospitalization, Other)
  Sender: FDA-Public Use
  Company Number: FR-JNJFOC-20120412201

PATIENT
  Sex: Male

DRUGS (1)
  1. GALANTAMINE HYDROBROMIDE [Suspect]
     Indication: PRODUCT USED FOR UNKNOWN INDICATION
     Route: 048
     Dates: end: 20120402

REACTIONS (4)
  - ATRIOVENTRICULAR BLOCK [None]
  - FUNGAL SKIN INFECTION [None]
  - LUNG DISORDER [None]
  - PULMONARY ARTERIAL HYPERTENSION [None]
